FAERS Safety Report 21941915 (Version 1)
Quarter: 2023Q1

REPORT INFORMATION
  Report Type: Report from Study
  Country: US (occurrence: US)
  Receive Date: 20230202
  Receipt Date: 20230202
  Transmission Date: 20230417
  Serious: No
  Sender: FDA-Public Use
  Company Number: US-EXELIXIS-CABO-22056020

PATIENT
  Sex: Female

DRUGS (7)
  1. CABOMETYX [Suspect]
     Active Substance: CABOZANTINIB S-MALATE
     Indication: Uterine cancer
     Dosage: 60 MG
  2. CABOMETYX [Suspect]
     Active Substance: CABOZANTINIB S-MALATE
     Dosage: 40 MG
  3. PEMAZYRE [Concomitant]
     Active Substance: PEMIGATINIB
  4. ADVIL [Concomitant]
     Active Substance: IBUPROFEN
  5. ZOCOR [Concomitant]
     Active Substance: SIMVASTATIN
  6. OMEPRAZOLE [Concomitant]
     Active Substance: OMEPRAZOLE
  7. SPIRIVA [Concomitant]
     Active Substance: TIOTROPIUM BROMIDE MONOHYDRATE

REACTIONS (7)
  - Mouth swelling [Unknown]
  - Tongue discomfort [Unknown]
  - Gait disturbance [Unknown]
  - Oral discomfort [Unknown]
  - Feeling abnormal [Unknown]
  - Pain in extremity [Unknown]
  - Off label use [Unknown]
